FAERS Safety Report 20562655 (Version 1)
Quarter: 2022Q1

REPORT INFORMATION
  Report Type: Spontaneous
  Country: FR (occurrence: FR)
  Receive Date: 20220307
  Receipt Date: 20220307
  Transmission Date: 20220423
  Serious: Yes (Death, Other)
  Sender: FDA-Public Use
  Company Number: None

PATIENT

DRUGS (4)
  1. PROPRANOLOL [Suspect]
     Active Substance: PROPRANOLOL HYDROCHLORIDE
     Indication: Tachycardia
     Dosage: 120 MG,DAILY
     Route: 048
  2. PROPRANOLOL [Suspect]
     Active Substance: PROPRANOLOL HYDROCHLORIDE
     Indication: Off label use
  3. IDEBENONE [Suspect]
     Active Substance: IDEBENONE
     Indication: Friedreich^s ataxia
     Dosage: 405 MG, DAILY
     Route: 048
     Dates: start: 202009
  4. CEPHALORIDINE [Suspect]
     Active Substance: CEPHALORIDINE
     Indication: Intermenstrual bleeding
     Dosage: 1DF ACCORDING TO CYCLE
     Route: 048
     Dates: start: 201912

REACTIONS (5)
  - Cardiogenic shock [Fatal]
  - Cerebrovascular accident [Fatal]
  - Product use issue [Unknown]
  - Product use in unapproved indication [Unknown]
  - Off label use [Unknown]

NARRATIVE: CASE EVENT DATE: 20220206
